FAERS Safety Report 8523572-4 (Version None)
Quarter: 2012Q3

REPORT INFORMATION
  Report Type: 
  Country: None (occurrence: None)
  Receive Date: 20120716
  Receipt Date: 20120716
  Transmission Date: 20120928
  Serious: Yes (Life-Threatening, Hospitalization, Disabling)
  Sender: FDA-Public Use
  Company Number: None

PATIENT
  Age: 38 Year
  Sex: Male
  Weight: 74.8435 kg

DRUGS (1)
  1. PAXIL [Suspect]
     Indication: PANIC ATTACK
     Dosage: 25 MG DAILY BUCCAL
     Route: 002
     Dates: start: 20060921, end: 20111116

REACTIONS (10)
  - MAJOR DEPRESSION [None]
  - ECONOMIC PROBLEM [None]
  - HALLUCINATION, AUDITORY [None]
  - PSYCHOTIC DISORDER [None]
  - FEELING ABNORMAL [None]
  - EMOTIONAL DISORDER [None]
  - LOSS OF EMPLOYMENT [None]
  - SUICIDAL IDEATION [None]
  - AMNESIA [None]
  - AGGRESSION [None]
